FAERS Safety Report 4374313-6 (Version None)
Quarter: 2004Q2

REPORT INFORMATION
  Report Type: 
  Country: None (occurrence: None)
  Receive Date: 20040608
  Receipt Date: 20040608
  Transmission Date: 20050107
  Serious: Yes (Other)
  Sender: FDA-Public Use
  Company Number: None

PATIENT
  Age: 42 Year
  Sex: Female
  Weight: 64.4108 kg

DRUGS (3)
  1. PAXIL [Suspect]
     Indication: ANGER
     Dosage: 1 TABLET DAILY
     Dates: start: 20000505, end: 20020816
  2. PAXIL [Suspect]
     Indication: DEPRESSED MOOD
     Dosage: 1 TABLET DAILY
     Dates: start: 20000505, end: 20020816
  3. PAXIL [Suspect]
     Indication: FEELING GUILTY
     Dosage: 1 TABLET DAILY
     Dates: start: 20000505, end: 20020816

REACTIONS (6)
  - DIZZINESS [None]
  - IMPAIRED WORK ABILITY [None]
  - MOTION SICKNESS [None]
  - MOVEMENT DISORDER [None]
  - NAUSEA [None]
  - PHOTOPHOBIA [None]
